FAERS Safety Report 12319400 (Version 1)
Quarter: 2016Q2

REPORT INFORMATION
  Report Type: Spontaneous
  Country: US (occurrence: US)
  Receive Date: 20160429
  Receipt Date: 20160429
  Transmission Date: 20160815
  Serious: No
  Sender: FDA-Public Use
  Company Number: US-ROCHE-1608401

PATIENT
  Sex: Female

DRUGS (3)
  1. PYCNOGENOL [Concomitant]
     Active Substance: DIETARY SUPPLEMENT
     Route: 065
  2. LOSARTAN. [Concomitant]
     Active Substance: LOSARTAN
     Dosage: 100 MG TAB 1 ORAL DAILY
     Route: 048
  3. AVASTIN [Suspect]
     Active Substance: BEVACIZUMAB
     Indication: OVARIAN CANCER
     Route: 042
     Dates: start: 20110308, end: 201202

REACTIONS (8)
  - Epistaxis [Unknown]
  - Peripheral venous disease [Not Recovered/Not Resolved]
  - Myalgia [Unknown]
  - Skin discolouration [Unknown]
  - Lymphoedema [Unknown]
  - Dry skin [Unknown]
  - Hernia [Recovered/Resolved]
  - Pain in extremity [Unknown]
